FAERS Safety Report 11198729 (Version 1)
Quarter: 2015Q2

REPORT INFORMATION
  Report Type: Spontaneous
  Country: CO (occurrence: None)
  Receive Date: 20150616
  Receipt Date: 20150616
  Transmission Date: 20150821
  Serious: Yes (Death, Other)
  Sender: FDA-Public Use
  Company Number: CO2015GSK082212

PATIENT

DRUGS (3)
  1. ETRAVIRINE [Concomitant]
     Active Substance: ETRAVIRINE
  2. MARAVIROC [Suspect]
     Active Substance: MARAVIROC
     Indication: PRODUCT USED FOR UNKNOWN INDICATION
     Route: 048
     Dates: start: 2012, end: 20150601
  3. RALTEGRAVIR [Concomitant]
     Active Substance: RALTEGRAVIR

REACTIONS (1)
  - Completed suicide [None]
